FAERS Safety Report 8918499 (Version 2)
Quarter: 2012Q4

REPORT INFORMATION
  Report Type: Report from Study
  Country: US (occurrence: US)
  Receive Date: 20121120
  Receipt Date: 20121130
  Transmission Date: 20130627
  Serious: Yes (Hospitalization, Other)
  Sender: FDA-Public Use
  Company Number: US-JNJFOC-20120806162

PATIENT
  Age: 57 None
  Sex: Female
  Weight: 67.13 kg

DRUGS (9)
  1. REMICADE [Suspect]
     Indication: RHEUMATOID ARTHRITIS
     Route: 042
     Dates: start: 20120514, end: 20120622
  2. SULFASALAZINE [Concomitant]
     Indication: ARTHRITIS
     Route: 048
  3. MELOXICAM [Concomitant]
     Indication: ARTHRITIS
     Route: 048
  4. CYMBALTA [Concomitant]
     Indication: ARTHRALGIA
     Route: 048
     Dates: start: 2012
  5. NIFEDICAL [Concomitant]
     Indication: RAYNAUD^S PHENOMENON
     Route: 048
  6. ASPIRIN [Concomitant]
     Dosage: Indication: self
     Route: 048
  7. VITAMIN B12 [Concomitant]
     Indication: VITAMIN B12 DEFICIENCY
     Route: 048
  8. HYDROCODONE [Concomitant]
     Indication: PAIN
     Dosage: as needed
     Route: 048
  9. FISH OIL [Concomitant]
     Indication: CARDIAC DISORDER

REACTIONS (9)
  - Dyspnoea [Unknown]
  - Rheumatoid arthritis [Not Recovered/Not Resolved]
  - Drug hypersensitivity [Unknown]
  - Pain [Not Recovered/Not Resolved]
  - Hypokinesia [Not Recovered/Not Resolved]
  - Pyrexia [Unknown]
  - Dehydration [Unknown]
  - Joint swelling [Unknown]
  - Urticaria [Recovering/Resolving]
